FAERS Safety Report 18174036 (Version 3)
Quarter: 2020Q3

REPORT INFORMATION
  Report Type: Spontaneous
  Country: CA (occurrence: CA)
  Receive Date: 20200819
  Receipt Date: 20200901
  Transmission Date: 20201103
  Serious: Yes (Disabling, Other)
  Sender: FDA-Public Use
  Company Number: CA-PFIZER INC-2020317280

PATIENT
  Age: 57 Year
  Sex: Female

DRUGS (7)
  1. LEFLUNOMIDE. [Concomitant]
     Active Substance: LEFLUNOMIDE
     Dosage: 20 MG, DAILY
     Dates: start: 202005, end: 202007
  2. SULFASALAZINE. [Suspect]
     Active Substance: SULFASALAZINE
     Dosage: (500 MG) 2 TABLETS TWICE DAILY
     Route: 048
  3. PINDOLOL. [Concomitant]
     Active Substance: PINDOLOL
     Dosage: UNK
     Route: 065
  4. METFORMIN [Concomitant]
     Active Substance: METFORMIN HYDROCHLORIDE
     Dosage: UNK
     Route: 065
  5. SULFASALAZINE. [Suspect]
     Active Substance: SULFASALAZINE
     Dosage: (1000 MG) 2 TABLETS TWICE DAILY
     Route: 048
  6. ATORVASTATIN [Concomitant]
     Active Substance: ATORVASTATIN
     Dosage: UNK
     Route: 065
  7. LANTUS [Concomitant]
     Active Substance: INSULIN GLARGINE
     Dosage: UNK
     Route: 065

REACTIONS (18)
  - Impaired driving ability [Unknown]
  - Alopecia [Unknown]
  - Plantar fasciitis [Unknown]
  - Bone fragmentation [Unknown]
  - Synovitis [Unknown]
  - Osteoarthritis [Unknown]
  - Exostosis [Unknown]
  - C-reactive protein increased [Unknown]
  - Avulsion fracture [Unknown]
  - Pleural thickening [Unknown]
  - Drug ineffective [Unknown]
  - Foot deformity [Unknown]
  - Paraesthesia [Unknown]
  - Carpal tunnel syndrome [Unknown]
  - Red blood cell sedimentation rate increased [Unknown]
  - Rheumatoid arthritis [Unknown]
  - Loss of personal independence in daily activities [Unknown]
  - Lymphadenopathy [Unknown]
